FAERS Safety Report 5436950-7 (Version None)
Quarter: 2007Q3

REPORT INFORMATION
  Report Type: 
  Country: None (occurrence: None)
  Receive Date: 20070831
  Receipt Date: 20070822
  Transmission Date: 20080115
  Serious: Yes (Hospitalization)
  Sender: FDA-Public Use
  Company Number: FR-ASTRAZENECA-2007CG01211

PATIENT
  Age: 24096 Day
  Sex: Male
  Weight: 86 kg

DRUGS (18)
  1. MOPRAL [Suspect]
     Route: 048
     Dates: start: 20050201
  2. PREVISCAN [Suspect]
     Route: 048
     Dates: start: 20070201, end: 20070724
  3. ROCEPHIN [Suspect]
     Route: 042
     Dates: start: 20070722, end: 20070730
  4. AMIODARONE [Suspect]
     Dosage: 200 MG DAILY FOR FIVE DAYS PER WEEK
     Route: 048
  5. ALLOPURINOL [Suspect]
     Route: 048
     Dates: start: 20070201
  6. KARDEGIC [Suspect]
     Route: 048
     Dates: start: 20050201
  7. LEVOTHYROX [Suspect]
     Route: 048
     Dates: start: 20070128
  8. TAHOR [Suspect]
     Route: 048
     Dates: start: 20050201
  9. CIFLOX [Suspect]
     Route: 048
     Dates: start: 20070724, end: 20070728
  10. ATENOLOL [Concomitant]
  11. BURINEX [Concomitant]
  12. CELLCEPT [Concomitant]
  13. HYPERIUM [Concomitant]
  14. METFORMIN HCL [Concomitant]
  15. MOLSIDOMINE [Concomitant]
  16. MOVICOL [Concomitant]
  17. NEORAL [Concomitant]
  18. LANTUS [Concomitant]

REACTIONS (2)
  - ANAEMIA [None]
  - PERITONEAL HAEMORRHAGE [None]
